FAERS Safety Report 10615392 (Version 1)
Quarter: 2014Q4

REPORT INFORMATION
  Report Type: Spontaneous
  Country: US (occurrence: None)
  Receive Date: 20141125
  Receipt Date: 20141125
  Transmission Date: 20150529
  Serious: Yes (Hospitalization, Disabling)
  Sender: FDA-Public Use
  Company Number: None

PATIENT
  Age: 56 Year
  Sex: Female
  Weight: 48.99 kg

DRUGS (1)
  1. LEVAQUIN [Suspect]
     Active Substance: LEVOFLOXACIN
     Indication: PERICHONDRITIS
     Dosage: 2 PILLS
     Route: 048
     Dates: start: 20121117, end: 20121126

REACTIONS (21)
  - Tremor [None]
  - Abdominal discomfort [None]
  - Joint swelling [None]
  - Gait disturbance [None]
  - Alopecia [None]
  - Feeling hot [None]
  - Carpal tunnel decompression [None]
  - Burning sensation [None]
  - Tibia fracture [None]
  - Blood glucose decreased [None]
  - Loss of consciousness [None]
  - Arthralgia [None]
  - Arthritis [None]
  - Erythromelalgia [None]
  - Periorbital contusion [None]
  - Ankle fracture [None]
  - Tendon sheath incision [None]
  - Bursitis [None]
  - Tendonitis [None]
  - Nerve compression [None]
  - Sensory loss [None]

NARRATIVE: CASE EVENT DATE: 20121117
